FAERS Safety Report 16404792 (Version 1)
Quarter: 2019Q2

REPORT INFORMATION
  Report Type: Spontaneous
  Country: GB (occurrence: GB)
  Receive Date: 20190607
  Receipt Date: 20190607
  Transmission Date: 20190711
  Serious: Yes (Other)
  Sender: FDA-Public Use
  Company Number: GB-MYLANLABS-2019M1053278

PATIENT
  Age: 71 Year
  Sex: Female
  Weight: 52.61 kg

DRUGS (6)
  1. EVACAL D3 [Concomitant]
     Dosage: UNK
  2. IBANDRONATE [Suspect]
     Active Substance: IBANDRONATE SODIUM
     Indication: OSTEOPOROSIS
     Dosage: 150 MILLIGRAM, MONTHLY
     Route: 048
     Dates: start: 20180701, end: 20181001
  3. PROLIA [Suspect]
     Active Substance: DENOSUMAB
     Indication: OSTEOPOROSIS
     Dosage: 60 MILLIGRAM (6 MONTH)
     Route: 051
     Dates: start: 20160414, end: 20170420
  4. RAMIPRIL. [Concomitant]
     Active Substance: RAMIPRIL
     Dosage: UNK
  5. VITAMIN B COMPOUND                 /08448901/ [Concomitant]
     Indication: GLOSSITIS
  6. URSODEOXYCHOLIC ACID [Concomitant]
     Active Substance: URSODIOL
     Indication: PRIMARY BILIARY CHOLANGITIS
     Dosage: UNK

REACTIONS (8)
  - Swelling of eyelid [Not Recovered/Not Resolved]
  - Pruritus [Not Recovered/Not Resolved]
  - Erythema [Not Recovered/Not Resolved]
  - Pain in jaw [Not Recovered/Not Resolved]
  - Blepharitis [Not Recovered/Not Resolved]
  - Eyelid pain [Not Recovered/Not Resolved]
  - Episcleritis [Not Recovered/Not Resolved]
  - Rash erythematous [Not Recovered/Not Resolved]

NARRATIVE: CASE EVENT DATE: 20180927
